FAERS Safety Report 26094087 (Version 1)
Quarter: 2025Q4

REPORT INFORMATION
  Report Type: Spontaneous
  Country: US (occurrence: None)
  Receive Date: 20251126
  Receipt Date: 20251126
  Transmission Date: 20260118
  Serious: No
  Sender: ALKERMES
  Company Number: US-ALKERMES INC.-ALK-2025-003075

PATIENT
  Age: 27 Year
  Sex: Female

DRUGS (1)
  1. LYBALVI [Suspect]
     Active Substance: OLANZAPINE\SAMIDORPHAN L-MALATE
     Indication: Bipolar disorder
     Dosage: 5 MILLIGRAM/10 MILLIGRAM, QD

REACTIONS (1)
  - Hypersomnia [Unknown]

NARRATIVE: CASE EVENT DATE: 20250101
